FAERS Safety Report 9865961 (Version 2)
Quarter: 2014Q1

REPORT INFORMATION
  Report Type: Spontaneous
  Country: US (occurrence: US)
  Receive Date: 20140203
  Receipt Date: 20140203
  Transmission Date: 20141002
  Serious: No
  Sender: FDA-Public Use
  Company Number: US-ALLERGAN-1312796US

PATIENT
  Age: 68 Year
  Sex: Female

DRUGS (2)
  1. RESTASIS [Suspect]
     Indication: DRY EYE
     Dosage: 2 GTT, BID
     Route: 047
  2. FLONASE [Concomitant]
     Indication: HYPERSENSITIVITY
     Dosage: UNK UNK, PRN

REACTIONS (6)
  - Visual acuity reduced [Recovering/Resolving]
  - Glassy eyes [Recovering/Resolving]
  - Lacrimation increased [Recovering/Resolving]
  - Ocular hyperaemia [Recovering/Resolving]
  - Scleral hyperaemia [Recovering/Resolving]
  - Vision blurred [Recovering/Resolving]
